FAERS Safety Report 15144720 (Version 4)
Quarter: 2018Q3

REPORT INFORMATION
  Report Type: Spontaneous
  Country: JP (occurrence: JP)
  Receive Date: 20180713
  Receipt Date: 20180912
  Transmission Date: 20181010
  Serious: Yes (Hospitalization, Congenital Anomaly)
  Sender: FDA-Public Use
  Company Number: JP-MALLINCKRODT-T201802911

PATIENT
  Age: 0 Day
  Sex: Female
  Weight: 3 kg

DRUGS (22)
  1. SOLDEM 3A [Concomitant]
     Active Substance: CARBOHYDRATES\POTASSIUM CHLORIDE\SODIUM CHLORIDE\SODIUM LACTATE
     Indication: PRODUCT USED FOR UNKNOWN INDICATION
     Dosage: 500 ML, UNK
     Route: 064
     Dates: start: 20171225, end: 20171225
  2. TAKEPRON [Concomitant]
     Active Substance: LANSOPRAZOLE
     Dosage: 60 MG, UNK
     Route: 064
     Dates: start: 20171228, end: 20171229
  3. BFLUID [Concomitant]
     Active Substance: AMINO ACIDS\DEXTROSE\ELECTROLYTES NOS\VITAMINS
     Indication: PRODUCT USED FOR UNKNOWN INDICATION
     Dosage: 1 DF, UNK
     Route: 064
     Dates: start: 20171229, end: 20171229
  4. HUMULIN N [Concomitant]
     Active Substance: INSULIN HUMAN
     Indication: TYPE 2 DIABETES MELLITUS
     Dosage: UNK
     Route: 064
  5. PRIMPERAN [Concomitant]
     Active Substance: METOCLOPRAMIDE HYDROCHLORIDE
     Indication: PRODUCT USED FOR UNKNOWN INDICATION
     Dosage: 2 ML, UNK
     Route: 064
     Dates: start: 20171225, end: 20171226
  6. ISOTONIC SODIUM CHLORIDE SOLUTION [Concomitant]
     Active Substance: SODIUM CHLORIDE
     Indication: PRODUCT USED FOR UNKNOWN INDICATION
     Dosage: 1000 ML, UNK
     Route: 064
     Dates: start: 20171225, end: 20171225
  7. VITAMEDIN [Concomitant]
     Active Substance: CYANOCOBALAMIN\PYRIDOXINE HYDROCHLORIDE\THIAMINE
     Indication: PRODUCT USED FOR UNKNOWN INDICATION
     Dosage: 1 DF, UNK
     Route: 064
     Dates: start: 20171228, end: 20171229
  8. VITAMIN C [Concomitant]
     Active Substance: ASCORBIC ACID
     Indication: PRODUCT USED FOR UNKNOWN INDICATION
     Dosage: 500 MG, UNK
     Route: 064
     Dates: start: 20171228, end: 20171229
  9. GLUCOSE [Concomitant]
     Active Substance: DEXTROSE
     Indication: PRODUCT USED FOR UNKNOWN INDICATION
     Dosage: 50 W/V %, 1 DF
     Route: 064
     Dates: start: 20171229, end: 20171229
  10. CEFOTIAM HYDROCHLORIDE [Concomitant]
     Active Substance: CEFOTIAM HYDROCHLORIDE
     Indication: PRODUCT USED FOR UNKNOWN INDICATION
     Dosage: 2 DF, UNK
     Route: 064
     Dates: start: 20171225, end: 20171229
  11. OFIRMEV [Suspect]
     Active Substance: ACETAMINOPHEN
     Dosage: 1000 MG, UNK
     Route: 064
     Dates: start: 20171226, end: 20171228
  12. SOLDEM 3A [Concomitant]
     Active Substance: CARBOHYDRATES\POTASSIUM CHLORIDE\SODIUM CHLORIDE\SODIUM LACTATE
     Dosage: 1000 ML, UNK
     Route: 064
     Dates: start: 20171226, end: 20171229
  13. PENTAZOCINE [Concomitant]
     Active Substance: PENTAZOCINE
     Dosage: 1 DF, UNK
     Route: 064
     Dates: start: 20171229, end: 20171229
  14. TAKEPRON [Concomitant]
     Active Substance: LANSOPRAZOLE
     Indication: PRODUCT USED FOR UNKNOWN INDICATION
     Dosage: 30 MG, UNK
     Route: 064
     Dates: start: 20171227, end: 20171227
  15. GOREISAN [Concomitant]
     Active Substance: HERBALS
     Indication: PRODUCT USED FOR UNKNOWN INDICATION
     Dosage: 7.5 G, UNK
     Route: 064
     Dates: start: 20171225, end: 20171231
  16. LABETALOL HYDROCHLORIDE. [Concomitant]
     Active Substance: LABETALOL HYDROCHLORIDE
     Indication: PRODUCT USED FOR UNKNOWN INDICATION
     Dosage: 50 MG, UNK
     Route: 064
     Dates: start: 20171226, end: 20171226
  17. DEXTROSE. [Concomitant]
     Active Substance: DEXTROSE
     Indication: PRODUCT USED FOR UNKNOWN INDICATION
     Dosage: UNK
     Route: 064
  18. OFIRMEV [Suspect]
     Active Substance: ACETAMINOPHEN
     Indication: ANALGESIC THERAPY
     Dosage: 2000 MG, UNK
     Route: 064
     Dates: start: 20171225, end: 20171225
  19. OFIRMEV [Suspect]
     Active Substance: ACETAMINOPHEN
     Dosage: 2000 MG, UNK
     Route: 064
     Dates: start: 20171229, end: 20171229
  20. ORADOL S [Concomitant]
     Indication: PRODUCT USED FOR UNKNOWN INDICATION
     Dosage: 1.5 MG, UNK
     Route: 064
     Dates: start: 20171225, end: 20180102
  21. ISOTONIC SODIUM CHLORIDE SOLUTION [Concomitant]
     Active Substance: SODIUM CHLORIDE
     Dosage: 500 ML, UNK
     Route: 064
     Dates: start: 20171227, end: 20171227
  22. PENTAZOCINE [Concomitant]
     Active Substance: PENTAZOCINE
     Indication: PRODUCT USED FOR UNKNOWN INDICATION
     Dosage: 1 DF, UNK
     Route: 064
     Dates: start: 20171227, end: 20171227

REACTIONS (6)
  - Oxygen saturation abnormal [Recovered/Resolved]
  - Pulmonary hypertension [Recovered/Resolved]
  - Atrial septal defect [Recovered/Resolved]
  - Foetal exposure during pregnancy [Unknown]
  - Ductus arteriosus premature closure [Recovered/Resolved]
  - Tricuspid valve incompetence [Recovered/Resolved]

NARRATIVE: CASE EVENT DATE: 20180126
